FAERS Safety Report 5381005-3 (Version None)
Quarter: 2007Q3

REPORT INFORMATION
  Report Type: 
  Country: None (occurrence: None)
  Receive Date: 20070702
  Receipt Date: 20061201
  Transmission Date: 20080115
  Serious: Yes (Other)
  Sender: FDA-Public Use
  Company Number: PROG00206003955

PATIENT
  Sex: Female
  Weight: 56.5 kg

DRUGS (2)
  1. PROMETRIUM [Suspect]
     Indication: COMPLICATION OF PREGNANCY
     Dosage: 200 MILLIGRAM(S) QD ORAL DAILY DOSE: 200 MILLIGRAM(S)
     Route: 048
     Dates: start: 20061111, end: 20061119
  2. PRENATAL VITAMINS (PRENATAL VITAMINS) [Concomitant]

REACTIONS (1)
  - ABORTION SPONTANEOUS [None]
